FAERS Safety Report 17845716 (Version 2)
Quarter: 2020Q2

REPORT INFORMATION
  Report Type: Spontaneous
  Country: KR (occurrence: KR)
  Receive Date: 20200601
  Receipt Date: 20200612
  Transmission Date: 20200714
  Serious: Yes (Death, Other)
  Sender: FDA-Public Use
  Company Number: KR-AMGEN-KORSP2020084019

PATIENT

DRUGS (3)
  1. CARFILZOMIB [Suspect]
     Active Substance: CARFILZOMIB
     Indication: PLASMA CELL MYELOMA
     Dosage: 20/27MG/M2 (DAYS 1-2, 8-9, 15-16)
     Route: 065
  2. REVLIMID [Concomitant]
     Active Substance: LENALIDOMIDE
     Indication: PLASMA CELL MYELOMA
     Dosage: 25 MILLIGRAM /DAY (DAYS 1-21)
  3. DEXAMETHASONE. [Concomitant]
     Active Substance: DEXAMETHASONE
     Indication: PLASMA CELL MYELOMA
     Dosage: 40 MILLIGRAM, QWK

REACTIONS (12)
  - Systemic mycosis [Unknown]
  - Pneumocystis jirovecii pneumonia [Unknown]
  - Therapy non-responder [Unknown]
  - Plasma cell myeloma [Unknown]
  - Pneumonia influenzal [Unknown]
  - Acute kidney injury [Unknown]
  - Therapeutic product effect incomplete [Unknown]
  - Death [Fatal]
  - Stenotrophomonas infection [Unknown]
  - Cardiac failure [Recovered/Resolved]
  - Tuberculosis [Unknown]
  - Tumour lysis syndrome [Unknown]
